FAERS Safety Report 9075243 (Version 1)
Quarter: 2013Q1

REPORT INFORMATION
  Report Type: Spontaneous
  Country: CN (occurrence: CN)
  Receive Date: 20130129
  Receipt Date: 20130129
  Transmission Date: 20140127
  Serious: Yes (Other)
  Sender: FDA-Public Use
  Company Number: PHHY2012CN117381

PATIENT
  Age: 76 Year
  Sex: Male
  Weight: 57 kg

DRUGS (2)
  1. BENAZEPRIL [Suspect]
     Indication: HYPERTENSION
     Dosage: 10 MG, QD
     Route: 048
     Dates: start: 20090106, end: 20090618
  2. CANDESARTAN [Suspect]
     Indication: HYPERTENSION

REACTIONS (2)
  - Renal artery stenosis [Recovering/Resolving]
  - Blood creatinine increased [Recovering/Resolving]
